FAERS Safety Report 6737968-4 (Version None)
Quarter: 2010Q2

REPORT INFORMATION
  Report Type: 
  Country: None (occurrence: None)
  Receive Date: 20100524
  Receipt Date: 20100519
  Transmission Date: 20101027
  Serious: Yes (Other)
  Sender: FDA-Public Use
  Company Number: FR-ROCHE-702488

PATIENT
  Sex: Male

DRUGS (6)
  1. ROACTEMRA [Suspect]
     Dosage: FORM: INFUSION, OTHER INDICATION: STILL DISEASE
     Route: 065
     Dates: start: 20090201
  2. ROACTEMRA [Suspect]
     Route: 065
     Dates: start: 20091201, end: 20100301
  3. AERIUS [Concomitant]
     Dosage: START DATE: FOR A LONG TIME
  4. SERETIDE [Concomitant]
     Dosage: START DATE: FOR A LONG TIME
  5. VENTOLIN [Concomitant]
     Dosage: START DATE: FOR A LONG TIME
  6. CORTANCYL [Concomitant]
     Dates: start: 20090201, end: 20091101

REACTIONS (2)
  - RASH [None]
  - VASCULITIS [None]
